FAERS Safety Report 8620272-7 (Version None)
Quarter: 2012Q3

REPORT INFORMATION
  Report Type: 
  Country: None (occurrence: None)
  Receive Date: 20120824
  Receipt Date: 20120818
  Transmission Date: 20120928
  Serious: Yes (Other)
  Sender: FDA-Public Use
  Company Number: GB-US-EMD SERONO, INC.-7029734

PATIENT
  Sex: Female

DRUGS (3)
  1. REBIF [Suspect]
     Indication: RELAPSING-REMITTING MULTIPLE SCLEROSIS
     Route: 058
     Dates: start: 20101117
  2. REBIF [Suspect]
     Route: 058
     Dates: start: 20101213
  3. REBIF [Suspect]
     Route: 058
     Dates: start: 20110603

REACTIONS (13)
  - LOWER RESPIRATORY TRACT INFECTION [None]
  - MUSCULOSKELETAL PAIN [None]
  - ARTHRALGIA [None]
  - FATIGUE [None]
  - DRUG DOSE OMISSION [None]
  - PAIN IN EXTREMITY [None]
  - MUSCLE SPASMS [None]
  - HYPERHIDROSIS [None]
  - INFLUENZA [None]
  - NASOPHARYNGITIS [None]
  - INFLUENZA LIKE ILLNESS [None]
  - INJECTION SITE ERYTHEMA [None]
  - COLD SWEAT [None]
